FAERS Safety Report 6661771-7 (Version None)
Quarter: 2010Q1

REPORT INFORMATION
  Report Type: 
  Country: None (occurrence: None)
  Receive Date: 20100331
  Receipt Date: 20090618
  Transmission Date: 20100710
  Serious: Yes (Other)
  Sender: FDA-Public Use
  Company Number: US-BRISTOL-MYERS SQUIBB COMPANY-14664726

PATIENT
  Age: 63 Year
  Sex: Male
  Weight: 84 kg

DRUGS (4)
  1. ERBITUX [Suspect]
     Indication: COLON CANCER METASTATIC
     Dosage: LOT:08C00193B; EXP DATE: 06/2011,2 VIALS 08C 00282A 6 VIALS
     Route: 042
     Dates: start: 20090615, end: 20090615
  2. ERBITUX [Suspect]
     Indication: METASTASIS
     Dosage: LOT:08C00193B; EXP DATE: 06/2011,2 VIALS 08C 00282A 6 VIALS
     Route: 042
     Dates: start: 20090615, end: 20090615
  3. ALOXI [Concomitant]
     Indication: PREMEDICATION
     Route: 042
  4. DECADRON [Concomitant]
     Indication: PREMEDICATION
     Route: 042

REACTIONS (1)
  - ANAPHYLACTIC REACTION [None]
